FAERS Safety Report 5894154-8 (Version None)
Quarter: 2008Q3

REPORT INFORMATION
  Report Type: 
  Country: None (occurrence: None)
  Receive Date: 20080923
  Receipt Date: 20080205
  Transmission Date: 20090109
  Serious: No
  Sender: FDA-Public Use
  Company Number: US-ASTRAZENECA-2008UW02456

PATIENT
  Age: 19 Year
  Sex: Male
  Weight: 122.5 kg

DRUGS (3)
  1. SEROQUEL [Suspect]
     Dosage: 25 MG AM 50 MG PM
     Route: 048
  2. PROVENTIL [Concomitant]
  3. DEPAKOTE [Concomitant]

REACTIONS (4)
  - DEPRESSION [None]
  - DIZZINESS [None]
  - HEADACHE [None]
  - POLYURIA [None]
